FAERS Safety Report 20708012 (Version 2)
Quarter: 2022Q2

REPORT INFORMATION
  Report Type: Report from Study
  Country: BR (occurrence: BR)
  Receive Date: 20220414
  Receipt Date: 20220510
  Transmission Date: 20220721
  Serious: Yes (Other)
  Sender: FDA-Public Use
  Company Number: BR-NOVARTISPH-NVSC2021BR302599

PATIENT
  Sex: Female

DRUGS (24)
  1. FULVESTRANT [Suspect]
     Active Substance: FULVESTRANT
     Indication: Breast cancer metastatic
     Dosage: UNK
     Route: 065
     Dates: start: 201901
  2. FULVESTRANT [Suspect]
     Active Substance: FULVESTRANT
     Indication: Hormone therapy
     Dosage: UNK
     Route: 065
     Dates: start: 202001
  3. FULVESTRANT [Suspect]
     Active Substance: FULVESTRANT
     Dosage: QMO (STARTED BEFORE KISQALI)
     Route: 065
  4. FULVESTRANT [Suspect]
     Active Substance: FULVESTRANT
     Dosage: UNK
     Route: 065
     Dates: start: 20210727
  5. KISQALI [Suspect]
     Active Substance: RIBOCICLIB
     Indication: Breast cancer
     Dosage: 3 DOSAGE FORM, QD
     Route: 065
     Dates: start: 20210104
  6. KISQALI [Suspect]
     Active Substance: RIBOCICLIB
     Dosage: UNK
     Route: 065
     Dates: start: 202101
  7. KISQALI [Suspect]
     Active Substance: RIBOCICLIB
     Dosage: UNK
     Route: 065
  8. KISQALI [Suspect]
     Active Substance: RIBOCICLIB
     Dosage: UNK
     Route: 065
  9. KISQALI [Suspect]
     Active Substance: RIBOCICLIB
     Dosage: UNK
     Route: 065
  10. KISQALI [Suspect]
     Active Substance: RIBOCICLIB
     Dosage: UNK
     Route: 065
  11. KISQALI [Suspect]
     Active Substance: RIBOCICLIB
     Dosage: UNK
     Route: 065
  12. KISQALI [Suspect]
     Active Substance: RIBOCICLIB
     Dosage: 600 MG, DAILY (3 TABLETS)
     Route: 065
  13. ANASTROZOLE [Suspect]
     Active Substance: ANASTROZOLE
     Indication: Product used for unknown indication
     Dosage: UNK
     Route: 065
     Dates: start: 2016
  14. LETROZOLE [Suspect]
     Active Substance: LETROZOLE
     Indication: Product used for unknown indication
     Dosage: UNK
     Route: 065
     Dates: start: 2016
  15. ZOMETA [Suspect]
     Active Substance: ZOLEDRONIC ACID
     Indication: Breast cancer
     Dosage: Q3MO
     Route: 065
     Dates: start: 201901
  16. ZOMETA [Suspect]
     Active Substance: ZOLEDRONIC ACID
     Dosage: UNK
     Route: 065
  17. TAMOXIFEN [Suspect]
     Active Substance: TAMOXIFEN
     Indication: Product used for unknown indication
     Dosage: UNK
     Route: 065
     Dates: start: 2016
  18. CLONAZEPAM [Suspect]
     Active Substance: CLONAZEPAM
     Indication: Product used for unknown indication
     Dosage: UNK
     Route: 065
  19. PIQRAY [Suspect]
     Active Substance: ALPELISIB
     Indication: Product used for unknown indication
     Dosage: UNK
     Route: 065
  20. PANTOPRAZOLE [Suspect]
     Active Substance: PANTOPRAZOLE
     Indication: Product used for unknown indication
     Dosage: UNK
     Route: 065
  21. ONDANSETRON [Suspect]
     Active Substance: ONDANSETRON
     Indication: Product used for unknown indication
     Dosage: UNK
     Route: 065
  22. ESTROGENS [Concomitant]
     Active Substance: ESTROGENS
     Indication: Product used for unknown indication
     Dosage: UNK
     Route: 065
  23. EXEMESTANE [Concomitant]
     Active Substance: EXEMESTANE
     Indication: Product used for unknown indication
     Dosage: UNK
     Route: 065
     Dates: start: 2018
  24. SYSTANE (HYPROMELLOSE 2910 (4000 MPA.S)) [Concomitant]
     Active Substance: HYPROMELLOSE 2910 (4000 MPA.S)
     Indication: Product used for unknown indication
     Dosage: TID
     Route: 065

REACTIONS (88)
  - Skull fracture [Not Recovered/Not Resolved]
  - Haemorrhoids [Unknown]
  - Carcinoembryonic antigen increased [Unknown]
  - Liver injury [Unknown]
  - Metastasis [Not Recovered/Not Resolved]
  - Metastases to bone [Not Recovered/Not Resolved]
  - Metastases to liver [Recovered/Resolved]
  - Metastases to spine [Not Recovered/Not Resolved]
  - Metastases to thorax [Recovering/Resolving]
  - Metastases to thyroid [Not Recovered/Not Resolved]
  - Breast cancer metastatic [Not Recovered/Not Resolved]
  - Metastases to liver [Unknown]
  - Haemorrhage [Unknown]
  - Skin fissures [Recovering/Resolving]
  - Face injury [Not Recovered/Not Resolved]
  - Dry throat [Not Recovered/Not Resolved]
  - Dry skin [Unknown]
  - Rectocele [Unknown]
  - Nasal dryness [Unknown]
  - Vulvovaginal dryness [Unknown]
  - Skin exfoliation [Recovering/Resolving]
  - Nasal discomfort [Not Recovered/Not Resolved]
  - Contusion [Not Recovered/Not Resolved]
  - Vascular rupture [Not Recovered/Not Resolved]
  - Clavicle fracture [Not Recovered/Not Resolved]
  - Panic attack [Recovering/Resolving]
  - Blood oestrogen decreased [Not Recovered/Not Resolved]
  - Skin disorder [Not Recovered/Not Resolved]
  - Skin atrophy [Unknown]
  - Pain [Unknown]
  - Injury [Unknown]
  - Bone neoplasm [Recovered/Resolved]
  - Limb injury [Recovering/Resolving]
  - Needle issue [Unknown]
  - Peripheral swelling [Recovering/Resolving]
  - Skin discolouration [Recovering/Resolving]
  - Hypokinesia [Unknown]
  - Movement disorder [Unknown]
  - Limb discomfort [Not Recovered/Not Resolved]
  - Muscular weakness [Unknown]
  - Lymphadenopathy [Recovered/Resolved]
  - Stress [Unknown]
  - Erythema [Recovered/Resolved]
  - Feeling abnormal [Recovering/Resolving]
  - Gastrooesophageal reflux disease [Unknown]
  - Gait disturbance [Recovered/Resolved]
  - Quality of life decreased [Recovered/Resolved]
  - Rhinitis [Unknown]
  - Fatigue [Unknown]
  - Bone pain [Recovered/Resolved]
  - Abdominal pain upper [Unknown]
  - PIK3CA-activated mutation [Unknown]
  - Hepatic mass [Not Recovered/Not Resolved]
  - Nodule [Unknown]
  - Feeling abnormal [Unknown]
  - Weight decreased [Unknown]
  - Insomnia [Unknown]
  - Greater trochanteric pain syndrome [Unknown]
  - Dry eye [Not Recovered/Not Resolved]
  - Urinary tract infection [Unknown]
  - Arthralgia [Unknown]
  - Rash macular [Recovering/Resolving]
  - Pain in extremity [Recovering/Resolving]
  - Epistaxis [Not Recovered/Not Resolved]
  - Alopecia [Not Recovered/Not Resolved]
  - Hypersensitivity [Unknown]
  - Haematoma [Unknown]
  - Pruritus [Recovering/Resolving]
  - Erythema [Unknown]
  - Tumour marker increased [Unknown]
  - Injection site swelling [Recovering/Resolving]
  - Drug intolerance [Unknown]
  - Drug ineffective [Unknown]
  - Dizziness [Not Recovered/Not Resolved]
  - Vomiting [Unknown]
  - Head discomfort [Recovered/Resolved]
  - Malaise [Unknown]
  - Constipation [Not Recovered/Not Resolved]
  - Polyp [Unknown]
  - Retching [Unknown]
  - Nausea [Unknown]
  - Dehydration [Unknown]
  - Sinusitis [Unknown]
  - Eating disorder [Unknown]
  - Thermal burn [Not Recovered/Not Resolved]
  - Skin lesion [Unknown]
  - Hiatus hernia [Unknown]
  - Sensory loss [Unknown]

NARRATIVE: CASE EVENT DATE: 20160101
